FAERS Safety Report 10948759 (Version 1)
Quarter: 2015Q1

REPORT INFORMATION
  Report Type: Spontaneous
  Country: CA (occurrence: CA)
  Receive Date: 20150324
  Receipt Date: 20150324
  Transmission Date: 20150721
  Serious: Yes (Other)
  Sender: FDA-Public Use
  Company Number: CA-TEVA-548493ACC

PATIENT
  Age: 64 Year
  Sex: Female
  Weight: 88 kg

DRUGS (16)
  1. VITAMIN D [Concomitant]
     Active Substance: CHOLECALCIFEROL
     Dosage: UNKNOWN FORM STRENGTH
     Route: 065
  2. ALDACTONE [Concomitant]
     Active Substance: SPIRONOLACTONE
     Dosage: UNKNOWN FORM STRENGTH
     Route: 065
  3. LOMOTIL [Concomitant]
     Active Substance: ATROPINE SULFATE\DIPHENOXYLATE HYDROCHLORIDE
     Dosage: UNKNOWN FORM STRENGTH
     Route: 065
  4. REPAGLINIDE. [Concomitant]
     Active Substance: REPAGLINIDE
     Dosage: UNKNOWN FORM STRENGTH
     Route: 065
  5. MONTELUKAST [Suspect]
     Active Substance: MONTELUKAST SODIUM
     Indication: SINUS CONGESTION
     Dosage: 10 MILLIGRAM DAILY;
     Route: 048
  6. EZETROL [Concomitant]
     Active Substance: EZETIMIBE
     Dosage: UNKNOWN FORM STRENGTH
     Route: 065
  7. TRAMCET [Concomitant]
     Active Substance: ACETAMINOPHEN\TRAMADOL
     Dosage: UNKNOWN FORM STRENGTH
     Route: 065
  8. SYNTHROID [Concomitant]
     Active Substance: LEVOTHYROXINE SODIUM
     Dosage: UNKNOWN FORM STRENGTH
     Route: 065
  9. VITAMIN B12 [Concomitant]
     Active Substance: CYANOCOBALAMIN
     Dosage: UNKNOWN FORM STRENGTH
     Route: 065
  10. ASA [Concomitant]
     Active Substance: ASPIRIN
     Dosage: UNKNOWN FORM STRENGTH
     Route: 065
  11. ATENOLOL TABLETS, BP [Concomitant]
     Dosage: UNKNOWN FORM STRENGTH
     Route: 065
  12. IMDUR - EXTENDED RELEASE TABLETS 60 MG [Concomitant]
     Route: 065
  13. QUININE [Concomitant]
     Active Substance: QUININE
     Dosage: UNKNOWN FORM STRENGTH
     Route: 065
  14. METFORMIN [Concomitant]
     Active Substance: METFORMIN HYDROCHLORIDE
     Dosage: UNKNOWN FORM STRENGTH
     Route: 065
  15. AVAMYS [Concomitant]
     Active Substance: FLUTICASONE FUROATE
     Dosage: UNKNOWN FORM STRENGTH
     Route: 065
  16. ZOCOR [Concomitant]
     Active Substance: SIMVASTATIN
     Dosage: UNKNOWN FORM STRENGTH
     Route: 065

REACTIONS (3)
  - Product substitution issue [Recovered/Resolved]
  - Blood glucose abnormal [Recovered/Resolved]
  - Concomitant disease aggravated [Recovered/Resolved]
